FAERS Safety Report 19305818 (Version 1)
Quarter: 2021Q2

REPORT INFORMATION
  Report Type: Spontaneous
  Country: DE (occurrence: DE)
  Receive Date: 20210525
  Receipt Date: 20210525
  Transmission Date: 20210717
  Serious: Yes (Other)
  Sender: FDA-Public Use
  Company Number: DE-ASTRAZENECA-2021A443051

PATIENT
  Age: 55 Year
  Sex: Female

DRUGS (8)
  1. ENTRESTO [Concomitant]
     Active Substance: SACUBITRIL\VALSARTAN
     Dosage: 24/26 1?0?1 (INCREASED TO 49/51 2 X/D)
  2. SPIRONOLACTONE. [Concomitant]
     Active Substance: SPIRONOLACTONE
     Dosage: 25 MG/D
  3. APIXABAN [Concomitant]
     Active Substance: APIXABAN
     Dosage: 2 INTO 5 MG
  4. AMIODARONE [Concomitant]
     Active Substance: AMIODARONE
     Dosage: 200MG/D
  5. XIGDUO XR [Suspect]
     Active Substance: DAPAGLIFLOZIN PROPANEDIOL\METFORMIN HYDROCHLORIDE
     Indication: DIABETES MELLITUS
     Dosage: 850/5
     Route: 048
     Dates: start: 201911
  6. METHOTREXAT [Concomitant]
     Active Substance: METHOTREXATE
  7. BISOPROLOL [Concomitant]
     Active Substance: BISOPROLOL
     Dosage: 5 MG/D
  8. TORASEMIDE [Concomitant]
     Active Substance: TORSEMIDE
     Dosage: 10 MG

REACTIONS (5)
  - Cardiac failure [Unknown]
  - Oedema peripheral [Unknown]
  - Vulvovaginal candidiasis [Unknown]
  - Pleural effusion [Unknown]
  - Atrial fibrillation [Unknown]

NARRATIVE: CASE EVENT DATE: 202002
